FAERS Safety Report 15728769 (Version 2)
Quarter: 2018Q4

REPORT INFORMATION
  Report Type: Report from Study
  Country: CN (occurrence: CN)
  Receive Date: 20181217
  Receipt Date: 20181228
  Transmission Date: 20190205
  Serious: Yes (Hospitalization)
  Sender: FDA-Public Use
  Company Number: CN-BAYER-2018-227586

PATIENT
  Sex: Female
  Weight: 42.3 kg

DRUGS (2)
  1. COPANLISIB. [Suspect]
     Active Substance: COPANLISIB
     Indication: NEOPLASM MALIGNANT
     Dosage: 60 MG
     Route: 042
     Dates: start: 20181204, end: 20181204
  2. COPANLISIB. [Suspect]
     Active Substance: COPANLISIB
     Indication: NEOPLASM MALIGNANT
     Dosage: 60 MG
     Route: 042
     Dates: start: 20181211, end: 20181211

REACTIONS (1)
  - Pyrexia [Recovered/Resolved]

NARRATIVE: CASE EVENT DATE: 20181207
